FAERS Safety Report 6682899-1 (Version None)
Quarter: 2010Q2

REPORT INFORMATION
  Report Type: 
  Country: None (occurrence: None)
  Receive Date: 20100413
  Receipt Date: 20100406
  Transmission Date: 20101027
  Serious: Yes (Hospitalization)
  Sender: FDA-Public Use
  Company Number: ALL1-2010-00768

PATIENT
  Age: 59 Year
  Sex: Female
  Weight: 154.2 kg

DRUGS (4)
  1. FOSRENOL [Suspect]
     Indication: HYPERPHOSPHATAEMIA
     Dosage: 1000 MG WITH MEALS, ORAL
     Route: 048
     Dates: start: 20090301
  2. ZEMPLAR [Concomitant]
  3. EPOETIN (EPOETIN ALFA) [Concomitant]
  4. HEPARIN [Concomitant]

REACTIONS (1)
  - FALL [None]
